FAERS Safety Report 5521577-9 (Version None)
Quarter: 2007Q4

REPORT INFORMATION
  Report Type: 
  Country: None (occurrence: None)
  Receive Date: 20071120
  Receipt Date: 20071109
  Transmission Date: 20080405
  Serious: Yes (Other)
  Sender: FDA-Public Use
  Company Number: US-JNJFOC-20070903802

PATIENT
  Sex: Female
  Weight: 68.04 kg

DRUGS (3)
  1. FENTANYL TRANSDERMAL SYSTEM [Suspect]
     Indication: PAIN
     Route: 062
  2. LEVOXYL [Concomitant]
     Indication: THYROID DISORDER
     Route: 048
  3. TRIAMTERENE [Concomitant]
     Indication: DIURETIC THERAPY
     Dosage: 37.5/25MG
     Route: 048

REACTIONS (3)
  - DRUG INEFFECTIVE [None]
  - OSTEOPOROSIS [None]
  - WITHDRAWAL SYNDROME [None]
